FAERS Safety Report 26087822 (Version 1)
Quarter: 2025Q4

REPORT INFORMATION
  Report Type: Spontaneous
  Country: US (occurrence: US)
  Receive Date: 20251125
  Receipt Date: 20251125
  Transmission Date: 20260118
  Serious: No
  Sender: TELIX PHARMACEUTICALS
  Company Number: US-TLX-2025000013

PATIENT
  Age: 62 Year
  Sex: Male

DRUGS (3)
  1. ILLUCCIX [Suspect]
     Active Substance: GALLIUM GA-68 GOZETOTIDE
     Indication: Diagnostic procedure
     Dosage: REQUESTED DOSE: 5.0MCI?DISPENSED DOSE: 5.2MCI?VOLUME: 6.2ML?CALIBRATION TIME: 2:45PM
     Route: 040
     Dates: start: 20250306, end: 20250306
  2. LUPRON [Concomitant]
     Active Substance: LEUPROLIDE ACETATE
     Dates: start: 20230830
  3. XTANDI [Concomitant]
     Active Substance: ENZALUTAMIDE
     Dates: start: 202312

REACTIONS (1)
  - Injection site pain [Recovered/Resolved]

NARRATIVE: CASE EVENT DATE: 20250306
